FAERS Safety Report 13104001 (Version 1)
Quarter: 2017Q1

REPORT INFORMATION
  Report Type: Spontaneous
  Country: US (occurrence: US)
  Receive Date: 20170111
  Receipt Date: 20170111
  Transmission Date: 20170428
  Serious: No
  Sender: FDA-Public Use
  Company Number: US-ASTRAZENECA-2017SE02641

PATIENT

DRUGS (2)
  1. SYNAGIS [Suspect]
     Active Substance: PALIVIZUMAB
     Indication: CHRONIC OBSTRUCTIVE PULMONARY DISEASE
     Dosage: 100.0MG/KG ONCE/SINGLE ADMINISTRATION
     Route: 030
  2. SYNAGIS [Suspect]
     Active Substance: PALIVIZUMAB
     Indication: ANTIVIRAL PROPHYLAXIS
     Dosage: 100.0MG/KG ONCE/SINGLE ADMINISTRATION
     Route: 030

REACTIONS (4)
  - Lung disorder [Unknown]
  - Respiratory syncytial virus test positive [Unknown]
  - Product use issue [Unknown]
  - Off label use [Unknown]
